FAERS Safety Report 5993298-X (Version None)
Quarter: 2008Q4

REPORT INFORMATION
  Report Type: 
  Country: None (occurrence: None)
  Receive Date: 20081210
  Receipt Date: 20081210
  Transmission Date: 20090506
  Serious: Yes (Other)
  Sender: FDA-Public Use
  Company Number: None

PATIENT
  Sex: Male
  Weight: 77.1115 kg

DRUGS (1)
  1. REYATAZ [Suspect]
     Indication: URTICARIA
     Dosage: 1 DAILY PO
     Route: 048
     Dates: start: 20030721, end: 20081208

REACTIONS (1)
  - NEPHROLITHIASIS [None]
